FAERS Safety Report 8873405 (Version 1)
Quarter: 2012Q4

REPORT INFORMATION
  Report Type: 
  Country: US (occurrence: US)
  Receive Date: 20121026
  Receipt Date: 20121026
  Transmission Date: 20130627
  Serious: No
  Sender: FDA-Public Use
  Company Number: US-AMGEN-USASP2012050269

PATIENT
  Age: 52 Year
  Sex: Female
  Weight: 70.3 kg

DRUGS (12)
  1. ENBREL [Suspect]
     Indication: PRODUCT USED FOR UNKNOWN INDICATION
     Dosage: 50 mg, qwk
     Route: 058
  2. METHOTREXATE [Concomitant]
     Dosage: 50MG/2ML
  3. PLAQUENIL                          /00072602/ [Concomitant]
     Dosage: 200 mg, UNK
  4. MOBIC [Concomitant]
     Dosage: 15 mg, UNK
  5. FOLIC ACID [Concomitant]
     Dosage: UNK
  6. OMEPRAZOLE [Concomitant]
     Dosage: 20.6 mg, UNK
  7. VITAMIN D /00107901/ [Concomitant]
     Dosage: 1000 IU, UNK
  8. CLARITIN                           /00917501/ [Concomitant]
     Dosage: 10 mg, UNK
  9. VALTREX [Concomitant]
     Dosage: 500 mg, UNK
  10. LOESTRIN 1.5/30-21 [Concomitant]
     Dosage: UNK
  11. CALCIUM +D                         /00944201/ [Concomitant]
     Dosage: UNK
  12. PREDNISONE [Concomitant]
     Dosage: 5 mg, UNK

REACTIONS (2)
  - Injection site pain [Unknown]
  - Injection site erythema [Unknown]
